FAERS Safety Report 9834556 (Version 1)
Quarter: 2014Q1

REPORT INFORMATION
  Report Type: Spontaneous
  Country: US (occurrence: US)
  Receive Date: 20140122
  Receipt Date: 20140122
  Transmission Date: 20141002
  Serious: No
  Sender: FDA-Public Use
  Company Number: US-009507513-1401USA003986

PATIENT
  Sex: Male

DRUGS (1)
  1. SINEMET [Suspect]
     Route: 051

REACTIONS (2)
  - Therapeutic response decreased [Unknown]
  - Wrong technique in drug usage process [Unknown]
